FAERS Safety Report 6334929-4 (Version None)
Quarter: 2009Q3

REPORT INFORMATION
  Report Type: 
  Country: None (occurrence: None)
  Receive Date: 20090831
  Receipt Date: 20090825
  Transmission Date: 20100115
  Serious: Yes (Hospitalization)
  Sender: FDA-Public Use
  Company Number: US-AVENTIS-200916876US

PATIENT
  Sex: Female
  Weight: 83.01 kg

DRUGS (4)
  1. APIDRA [Suspect]
     Route: 051
     Dates: start: 20080101
  2. APIDRA [Suspect]
     Route: 051
     Dates: start: 20080101
  3. OPTICLIK (INSULIN INJECTION PEN) [Suspect]
     Dates: start: 20080101
  4. LANTUS [Concomitant]
     Dosage: DOSE: UNK

REACTIONS (3)
  - CEREBROVASCULAR ACCIDENT [None]
  - DIABETES MELLITUS INADEQUATE CONTROL [None]
  - EXPIRED DRUG ADMINISTERED [None]
